FAERS Safety Report 25614289 (Version 2)
Quarter: 2025Q3

REPORT INFORMATION
  Report Type: Spontaneous
  Country: US (occurrence: US)
  Receive Date: 20250728
  Receipt Date: 20250818
  Transmission Date: 20251021
  Serious: No
  Sender: SANOFI AVENTIS
  Company Number: US-SA-2025SA216143

PATIENT
  Age: 32 Year
  Sex: Female

DRUGS (3)
  1. DUPIXENT [Suspect]
     Active Substance: DUPILUMAB
     Indication: Hypersensitivity
     Route: 058
     Dates: start: 20250612, end: 20250612
  2. DUPIXENT [Suspect]
     Active Substance: DUPILUMAB
     Indication: Urticaria
     Dosage: 300 MG, QOW
     Route: 058
     Dates: start: 202506
  3. DUPIXENT [Suspect]
     Active Substance: DUPILUMAB
     Indication: Psoriatic arthropathy

REACTIONS (5)
  - Injection site swelling [Recovered/Resolved]
  - Injection site pain [Recovered/Resolved]
  - Injection site pruritus [Recovered/Resolved]
  - Arthralgia [Unknown]
  - Product use in unapproved indication [Unknown]

NARRATIVE: CASE EVENT DATE: 20250101
